FAERS Safety Report 15363979 (Version 1)
Quarter: 2018Q3

REPORT INFORMATION
  Report Type: Spontaneous
  Country: US (occurrence: US)
  Receive Date: 20180831
  Receipt Date: 20180831
  Transmission Date: 20181010
  Serious: Yes (Life-Threatening, Hospitalization)
  Sender: FDA-Public Use
  Company Number: None

PATIENT
  Age: 65 Year
  Sex: Male
  Weight: 90.45 kg

DRUGS (1)
  1. RIVAROXABAN [Suspect]
     Active Substance: RIVAROXABAN
     Indication: DEEP VEIN THROMBOSIS
     Route: 048
     Dates: start: 20170510, end: 20180101

REACTIONS (3)
  - Anastomotic ulcer haemorrhage [None]
  - Haemoglobin decreased [None]
  - Gastrointestinal tract mucosal pigmentation [None]

NARRATIVE: CASE EVENT DATE: 20180101
